FAERS Safety Report 11274954 (Version 3)
Quarter: 2015Q3

REPORT INFORMATION
  Report Type: Report from Study
  Country: JP (occurrence: JP)
  Receive Date: 20150716
  Receipt Date: 20150810
  Transmission Date: 20151125
  Serious: Yes (Hospitalization, Other)
  Sender: FDA-Public Use
  Company Number: JP-PFIZER INC-2015231419

PATIENT
  Age: 55 Year
  Sex: Female
  Weight: 39 kg

DRUGS (10)
  1. COMTAN [Suspect]
     Active Substance: ENTACAPONE
     Dosage: 50 MG, 5X/DAY
     Route: 048
     Dates: start: 20140715, end: 20150317
  2. NOURIAST [Suspect]
     Active Substance: ISTRADEFYLLINE
     Dosage: 40 MG/ DAY
     Route: 048
     Dates: start: 20140617, end: 20150317
  3. SYMMETREL [Concomitant]
     Active Substance: AMANTADINE HYDROCHLORIDE
     Dosage: UNK
     Route: 048
     Dates: end: 20141209
  4. EXCEGRAN [Concomitant]
     Active Substance: ZONISAMIDE
     Dosage: UNK
     Dates: end: 20150317
  5. ARTANE [Concomitant]
     Active Substance: TRIHEXYPHENIDYL HYDROCHLORIDE
     Dosage: UNK
     Route: 048
     Dates: end: 20150317
  6. CABASER [Suspect]
     Active Substance: CABERGOLINE
     Indication: PARKINSON^S DISEASE
     Dosage: 1 MG, QD
     Route: 048
     Dates: end: 20141014
  7. COMTAN [Suspect]
     Active Substance: ENTACAPONE
     Indication: PARKINSON^S DISEASE
     Dosage: 100 MG, 5X/DAY
     Route: 048
  8. NOURIAST [Suspect]
     Active Substance: ISTRADEFYLLINE
     Indication: PARKINSON^S DISEASE
     Dosage: 20 MG/DAY
     Route: 048
     Dates: start: 20140520
  9. MADOPAR [Concomitant]
     Active Substance: BENSERAZIDE HYDROCHLORIDE\LEVODOPA
     Dosage: UNK
  10. PERMAX /00613002/ [Concomitant]
     Dosage: UNK
     Dates: end: 20150317

REACTIONS (4)
  - Pubis fracture [Unknown]
  - Parkinson^s disease [Unknown]
  - Condition aggravated [Unknown]
  - Dyskinesia [Recovered/Resolved]

NARRATIVE: CASE EVENT DATE: 20140715
